FAERS Safety Report 21959862 (Version 1)
Quarter: 2023Q1

REPORT INFORMATION
  Report Type: Report from Study
  Country: US (occurrence: US)
  Receive Date: 20230206
  Receipt Date: 20230206
  Transmission Date: 20230418
  Serious: Yes (Other)
  Sender: FDA-Public Use
  Company Number: US-ABBVIE-4295526

PATIENT
  Sex: Male

DRUGS (1)
  1. SKYRIZI [Suspect]
     Active Substance: RISANKIZUMAB-RZAA
     Indication: Crohn^s disease
     Route: 058

REACTIONS (12)
  - Eosinophilic oesophagitis [Unknown]
  - Fatigue [Unknown]
  - Nausea [Unknown]
  - Upper respiratory tract infection [Unknown]
  - Hyperhidrosis [Unknown]
  - Gastrooesophageal reflux disease [Unknown]
  - Metabolic syndrome [Unknown]
  - Sleep apnoea syndrome [Unknown]
  - Exposure to communicable disease [Unknown]
  - Sinus operation [Unknown]
  - Hepatic fibrosis [Unknown]
  - Hepatic steatosis [Unknown]
